FAERS Safety Report 8782798 (Version 1)
Quarter: 2012Q4

REPORT INFORMATION
  Report Type: 
  Country: US (occurrence: US)
  Receive Date: 20120913
  Receipt Date: 20120913
  Transmission Date: 20130627
  Serious: Yes (Other)
  Sender: FDA-Public Use
  Company Number: US-GLAXOSMITHKLINE-A0992394A

PATIENT
  Age: 70 Year
  Sex: Female

DRUGS (3)
  1. PROMACTA [Suspect]
     Indication: IDIOPATHIC THROMBOCYTOPENIC PURPURA
     Dosage: 25MG Per day
     Route: 048
     Dates: start: 20120507
  2. THYROID MEDICATION [Concomitant]
  3. PRILOSEC [Concomitant]

REACTIONS (2)
  - Oedema peripheral [Unknown]
  - Abdominal pain upper [Unknown]
